FAERS Safety Report 10078516 (Version 4)
Quarter: 2014Q2

REPORT INFORMATION
  Report Type: Spontaneous
  Country: IT (occurrence: IT)
  Receive Date: 20140415
  Receipt Date: 20140516
  Transmission Date: 20141212
  Serious: Yes (Other)
  Sender: FDA-Public Use
  Company Number: IT-JNJFOC-20140408486

PATIENT
  Sex: 0

DRUGS (3)
  1. GOLIMUMAB [Suspect]
     Indication: UVEITIS
     Route: 058
     Dates: start: 201103, end: 201307
  2. PREDNISOLONE [Concomitant]
     Dosage: 12.5-3.5 MG/DAY
     Route: 065
  3. METHOTREXATE [Concomitant]
     Route: 065

REACTIONS (3)
  - Lung infection [Recovered/Resolved]
  - Skin exfoliation [Recovered/Resolved]
  - Drug ineffective for unapproved indication [Unknown]
